FAERS Safety Report 5529625-7 (Version None)
Quarter: 2007Q4

REPORT INFORMATION
  Report Type: 
  Country: None (occurrence: None)
  Receive Date: 20071129
  Receipt Date: 20071119
  Transmission Date: 20080405
  Serious: Yes (Other)
  Sender: FDA-Public Use
  Company Number: JP-PFIZER INC-2007095987

PATIENT
  Age: 70 Year
  Sex: Male

DRUGS (1)
  1. LINCOCIN [Suspect]
     Dosage: TEXT:2 VIAL
     Route: 042

REACTIONS (1)
  - ELECTROCARDIOGRAM QT PROLONGED [None]
